FAERS Safety Report 8500432-6 (Version None)
Quarter: 2012Q3

REPORT INFORMATION
  Report Type: 
  Country: None (occurrence: None)
  Receive Date: 20120710
  Receipt Date: 20120703
  Transmission Date: 20120928
  Serious: Yes (Other)
  Sender: FDA-Public Use
  Company Number: US-GLAXOSMITHKLINE-A0983213A

PATIENT
  Age: 70 Year
  Sex: Female

DRUGS (2)
  1. HORIZANT [Suspect]
     Indication: MUSCLE SPASMS
     Dosage: 600MG PER DAY
     Route: 048
     Dates: start: 20120702
  2. NO CONCURRENT MEDICATION [Concomitant]

REACTIONS (8)
  - INCOHERENT [None]
  - GAIT DISTURBANCE [None]
  - APHASIA [None]
  - SOMNOLENCE [None]
  - ABNORMAL DREAMS [None]
  - VERTIGO [None]
  - ABNORMAL BEHAVIOUR [None]
  - FEELING ABNORMAL [None]
